FAERS Safety Report 9354794 (Version 1)
Quarter: 2013Q2

REPORT INFORMATION
  Report Type: Spontaneous
  Country: CA (occurrence: CA)
  Receive Date: 20130619
  Receipt Date: 20130619
  Transmission Date: 20140414
  Serious: Yes (Hospitalization)
  Sender: FDA-Public Use
  Company Number: CA-ROCHE-1237236

PATIENT
  Age: 15 Year
  Sex: Male
  Weight: 76 kg

DRUGS (1)
  1. ACCUTANE [Suspect]
     Indication: PRODUCT USED FOR UNKNOWN INDICATION
     Dosage: THERAPY DURATION WAS 24 DAYS
     Route: 048

REACTIONS (4)
  - Chest pain [Recovered/Resolved]
  - Myocarditis [Recovered/Resolved]
  - Troponin increased [Recovered/Resolved]
  - Ventricular tachycardia [Recovered/Resolved]
